FAERS Safety Report 24870956 (Version 2)
Quarter: 2025Q1

REPORT INFORMATION
  Report Type: Report from Study
  Country: GR (occurrence: GR)
  Receive Date: 20250121
  Receipt Date: 20250307
  Transmission Date: 20250409
  Serious: Yes (Death, Hospitalization, Other)
  Sender: ABBVIE
  Company Number: GR-ABBVIE-6093149

PATIENT
  Sex: Female

DRUGS (2)
  1. CARBIDOPA\LEVODOPA [Suspect]
     Active Substance: CARBIDOPA\LEVODOPA
     Indication: Parkinson^s disease
     Route: 050
     Dates: start: 20230207
  2. CARBIDOPA\LEVODOPA [Suspect]
     Active Substance: CARBIDOPA\LEVODOPA

REACTIONS (6)
  - Breast cancer female [Not Recovered/Not Resolved]
  - Bone cancer metastatic [Not Recovered/Not Resolved]
  - Hepatic cancer metastatic [Not Recovered/Not Resolved]
  - Coma [Not Recovered/Not Resolved]
  - Pulmonary oedema [Unknown]
  - Cardiac arrest [Fatal]
